FAERS Safety Report 5454866-7 (Version None)
Quarter: 2007Q3

REPORT INFORMATION
  Report Type: 
  Country: None (occurrence: None)
  Receive Date: 20070917
  Receipt Date: 20061006
  Transmission Date: 20080115
  Serious: Yes (Other)
  Sender: FDA-Public Use
  Company Number: US-ASTRAZENECA-2006UW19516

PATIENT
  Age: 13 Year
  Sex: Male

DRUGS (5)
  1. SEROQUEL [Suspect]
     Route: 048
     Dates: start: 20031101, end: 20050601
  2. ABILIFY [Concomitant]
     Route: 048
  3. ZYPREXA [Concomitant]
     Route: 048
  4. LITHIUM [Concomitant]
     Route: 048
  5. DEPAKOTE [Concomitant]
     Route: 048

REACTIONS (1)
  - CATARACT [None]
